FAERS Safety Report 9847738 (Version 2)
Quarter: 2014Q1

REPORT INFORMATION
  Report Type: Report from Study
  Country: US (occurrence: US)
  Receive Date: 20140128
  Receipt Date: 20140128
  Transmission Date: 20141002
  Serious: Yes (Other)
  Sender: FDA-Public Use
  Company Number: US-ROCHE-1102123

PATIENT
  Age: 57 Year
  Sex: Female
  Weight: 58.11 kg

DRUGS (16)
  1. RITUXAN [Suspect]
     Indication: RHEUMATOID ARTHRITIS
     Route: 042
     Dates: start: 20120401
  2. RITUXAN [Suspect]
     Route: 042
     Dates: start: 20120425
  3. RITUXAN [Suspect]
     Route: 042
     Dates: start: 20120504
  4. RITUXAN [Suspect]
     Route: 042
     Dates: start: 20130515
  5. RITUXAN [Suspect]
     Route: 042
     Dates: start: 20130529
  6. BENADRYL (UNITED STATES) [Suspect]
     Indication: PREMEDICATION
     Route: 048
     Dates: start: 20130515
  7. METHOTREXATE [Concomitant]
     Indication: RHEUMATOID ARTHRITIS
     Route: 048
  8. LOSARTAN POTASSIUM [Concomitant]
     Indication: HYPERTENSION
     Route: 048
  9. AMLODIPINE BESILATE [Concomitant]
     Indication: HYPERTENSION
     Route: 048
  10. LABETALOL HCL [Concomitant]
     Route: 065
  11. SIMVASTATIN [Concomitant]
  12. LORATADINE [Concomitant]
  13. CYMBALTA [Concomitant]
     Route: 065
  14. FOLIC ACID [Concomitant]
  15. TRAZODONE [Concomitant]
     Route: 065
  16. ABILIFY [Concomitant]

REACTIONS (11)
  - Diabetes mellitus [Not Recovered/Not Resolved]
  - Diarrhoea [Unknown]
  - Pain [Unknown]
  - Faeces hard [Unknown]
  - Arthralgia [Unknown]
  - Osteoarthritis [Unknown]
  - Fungal infection [Unknown]
  - Arthralgia [Unknown]
  - Musculoskeletal pain [Unknown]
  - Hallucination [Recovered/Resolved]
  - Urinary incontinence [Unknown]
